FAERS Safety Report 8998318 (Version 4)
Quarter: 2013Q2

REPORT INFORMATION
  Report Type: Spontaneous
  Country: JP (occurrence: JP)
  Receive Date: 20130104
  Receipt Date: 20130402
  Transmission Date: 20140414
  Serious: Yes (Other)
  Sender: FDA-Public Use
  Company Number: JP-PFIZER INC-2013002720

PATIENT
  Age: 81 Year
  Sex: Female
  Weight: 50.1 kg

DRUGS (10)
  1. LYRICA [Suspect]
     Indication: ARTHRALGIA
     Dosage: 75 MG, 1X/DAY (BEFORE SLEEP)
     Route: 048
     Dates: start: 20121217
  2. LYRICA [Suspect]
     Indication: DIABETIC NEUROPATHY
  3. HALFDIGOXIN [Concomitant]
     Dosage: UNK
  4. ALDACTONE [Concomitant]
     Dosage: UNK
  5. LASIX [Concomitant]
     Dosage: UNK
  6. AMARYL [Concomitant]
     Indication: DIABETES MELLITUS
     Dosage: 2 MG, 2X/DAY
     Route: 048
  7. EQUA [Concomitant]
     Indication: DIABETES MELLITUS
     Dosage: 100 MG, 2X/DAY
     Route: 048
     Dates: start: 20121019
  8. FAMOTIDINE [Concomitant]
     Indication: GASTROOESOPHAGEAL REFLUX DISEASE
     Dosage: 20 MG, 1X/DAY
     Route: 048
     Dates: start: 20110604
  9. MYONAL [Concomitant]
     Indication: DIABETIC NEUROPATHY
     Dosage: 150 MG, 3X/DAY
     Route: 048
     Dates: start: 20111018
  10. SHAKUYAKU-KANZO-TO [Concomitant]
     Indication: DIABETIC NEUROPATHY
     Dosage: 3.0 G, 1X/DAY
     Route: 048
     Dates: start: 20121119

REACTIONS (5)
  - Cardiac failure [Recovered/Resolved]
  - Rib fracture [Recovered/Resolved]
  - Fall [Recovered/Resolved]
  - Arthralgia [Recovered/Resolved]
  - Paraesthesia [Recovered/Resolved]
